FAERS Safety Report 5374808-2 (Version None)
Quarter: 2007Q2

REPORT INFORMATION
  Report Type: 
  Country: None (occurrence: None)
  Receive Date: 20070629
  Receipt Date: 20070625
  Transmission Date: 20071010
  Serious: Yes (Other)
  Sender: FDA-Public Use
  Company Number: A0659957A

PATIENT
  Age: 67 Year
  Sex: Male

DRUGS (9)
  1. AVANDIA [Suspect]
     Dosage: 8MG PER DAY
     Route: 048
     Dates: start: 19990101
  2. NOVOLIN R [Concomitant]
  3. GLIPIZIDE [Concomitant]
  4. METFORMIN HCL [Concomitant]
  5. DIOVAN [Concomitant]
  6. HYDROCHLOROTHIAZIDE [Concomitant]
  7. NIACIN [Concomitant]
  8. PROSCAR [Concomitant]
  9. CRESTOR [Concomitant]

REACTIONS (1)
  - ATRIAL FIBRILLATION [None]
